FAERS Safety Report 6940228-X (Version None)
Quarter: 2010Q3

REPORT INFORMATION
  Report Type: 
  Country: None (occurrence: None)
  Receive Date: 20100825
  Receipt Date: 20100817
  Transmission Date: 20110219
  Serious: Yes (Other)
  Sender: FDA-Public Use
  Company Number: US-ELI_LILLY_AND_COMPANY-US201008004999

PATIENT
  Sex: Female

DRUGS (1)
  1. HUMATROPE [Suspect]
     Indication: AUTOIMMUNE THYROIDITIS
     Dosage: UNK, UNKNOWN
     Route: 065
     Dates: end: 20100101

REACTIONS (6)
  - EYE DISORDER [None]
  - LUMBAR PUNCTURE [None]
  - OPTIC NERVE DISORDER [None]
  - PSEUDOMONAS INFECTION [None]
  - RHINORRHOEA [None]
  - SINUSITIS BACTERIAL [None]
